FAERS Safety Report 19238433 (Version 1)
Quarter: 2021Q2

REPORT INFORMATION
  Report Type: Spontaneous
  Country: US (occurrence: US)
  Receive Date: 20210510
  Receipt Date: 20210510
  Transmission Date: 20210717
  Serious: No
  Sender: FDA-Public Use
  Company Number: US-PFIZER INC-2021480466

PATIENT
  Age: 84 Year
  Sex: Male
  Weight: 85.03 kg

DRUGS (2)
  1. INLYTA [Suspect]
     Active Substance: AXITINIB
  2. FISH OIL [Concomitant]
     Active Substance: FISH OIL

REACTIONS (1)
  - Asthenia [Unknown]
